FAERS Safety Report 25409998 (Version 7)
Quarter: 2025Q3

REPORT INFORMATION
  Report Type: Report from Study
  Country: US (occurrence: US)
  Receive Date: 20250607
  Receipt Date: 20250915
  Transmission Date: 20251021
  Serious: Yes (Other)
  Sender: NOVARTIS
  Company Number: US-002147023-NVSC2025US090502

PATIENT
  Sex: Female

DRUGS (1)
  1. KESIMPTA [Suspect]
     Active Substance: OFATUMUMAB
     Indication: Multiple sclerosis
     Route: 065

REACTIONS (8)
  - Dementia [Unknown]
  - Seizure [Unknown]
  - Road traffic accident [Unknown]
  - Headache [Unknown]
  - Vomiting [Unknown]
  - Fall [Unknown]
  - Head injury [Unknown]
  - Wrong technique in product usage process [Unknown]
